FAERS Safety Report 18187221 (Version 9)
Quarter: 2022Q2

REPORT INFORMATION
  Report Type: Report from Study
  Country: CO (occurrence: CO)
  Receive Date: 20200824
  Receipt Date: 20220424
  Transmission Date: 20220721
  Serious: Yes (Death, Life-Threatening, Hospitalization, Other)
  Sender: FDA-Public Use
  Company Number: NVSC2020CO224737

PATIENT
  Sex: Female
  Weight: 73.5 kg

DRUGS (9)
  1. ELTROMBOPAG OLAMINE [Suspect]
     Active Substance: ELTROMBOPAG OLAMINE
     Indication: Immune thrombocytopenia
     Dosage: 50 MG, QD
     Route: 048
  2. ELTROMBOPAG OLAMINE [Suspect]
     Active Substance: ELTROMBOPAG OLAMINE
     Dosage: 25 MG, QD
     Route: 048
     Dates: start: 202006, end: 20210523
  3. ELTROMBOPAG OLAMINE [Suspect]
     Active Substance: ELTROMBOPAG OLAMINE
     Dosage: 50 MG, QD
     Route: 048
     Dates: start: 20210524
  4. ENALAPRIL [Concomitant]
     Active Substance: ENALAPRIL
     Indication: Hypertension
     Dosage: 20 MG, QD
     Route: 048
     Dates: start: 2016
  5. NIFEDIPINE [Concomitant]
     Active Substance: NIFEDIPINE
     Indication: Hypertension
     Dosage: 20 MG, QD
     Route: 048
     Dates: start: 2016
  6. CALCIUM\VITAMIN D [Concomitant]
     Active Substance: CALCIUM\VITAMIN D
     Indication: Bone disorder
     Dosage: UNK UNK, QD (600 MG AND 200 UI)
     Route: 048
  7. INSULIN NOS [Concomitant]
     Active Substance: INSULIN NOS
     Indication: Diabetes mellitus
     Dosage: UNK (EVERY 8 DAYS)
     Route: 058
     Dates: start: 2018
  8. DEXAMETHASONE [Concomitant]
     Active Substance: DEXAMETHASONE
     Indication: Product used for unknown indication
     Dosage: UNK, QD
     Route: 048
  9. LENALIDOMIDE [Concomitant]
     Active Substance: LENALIDOMIDE
     Indication: Product used for unknown indication
     Dosage: UNK UNK, QD (FOR 21 DAYS AND RESTS 8 DAYS)
     Route: 048

REACTIONS (33)
  - Death [Fatal]
  - Platelet count decreased [Unknown]
  - Haemoglobin decreased [Unknown]
  - Nervous system disorder [Unknown]
  - Venous occlusion [Unknown]
  - Blood glucose decreased [Unknown]
  - Blood pressure abnormal [Unknown]
  - Cardiac failure [Unknown]
  - Circulatory collapse [Unknown]
  - Arterial occlusive disease [Unknown]
  - Arthralgia [Unknown]
  - Decreased immune responsiveness [Unknown]
  - Pleural effusion [Unknown]
  - Pain [Not Recovered/Not Resolved]
  - Dysarthria [Not Recovered/Not Resolved]
  - Renal failure [Unknown]
  - Abdominal pain [Not Recovered/Not Resolved]
  - Immune thrombocytopenia [Unknown]
  - Back pain [Not Recovered/Not Resolved]
  - Plasma cell myeloma [Unknown]
  - Rib fracture [Unknown]
  - Dysuria [Unknown]
  - Blood pressure increased [Unknown]
  - Nasopharyngitis [Unknown]
  - Blood phosphorus abnormal [Unknown]
  - Platelet disorder [Unknown]
  - Blood calcium abnormal [Unknown]
  - Blood glucose abnormal [Unknown]
  - Blood albumin abnormal [Unknown]
  - Blood cholesterol abnormal [Unknown]
  - Blood triglycerides abnormal [Unknown]
  - Haematocrit abnormal [Unknown]
  - Diarrhoea [Unknown]

NARRATIVE: CASE EVENT DATE: 20160101
